FAERS Safety Report 5517642-2 (Version None)
Quarter: 2007Q4

REPORT INFORMATION
  Report Type: 
  Country: None (occurrence: None)
  Receive Date: 20071114
  Receipt Date: 20071029
  Transmission Date: 20080405
  Serious: Yes (Disabling)
  Sender: FDA-Public Use
  Company Number: JP-PFIZER INC-2007095055

PATIENT
  Sex: Female

DRUGS (7)
  1. ZYRTEC [Suspect]
     Indication: URTICARIA
     Dosage: DAILY DOSE:10MG
     Route: 048
  2. CINAL [Concomitant]
     Indication: LEUKOCYTOCLASTIC VASCULITIS
     Route: 048
  3. MECOBALAMIN [Concomitant]
     Indication: HYPOAESTHESIA
     Route: 048
  4. REBAMIPIDE [Concomitant]
     Route: 048
  5. RANITIDINE HYDROCHLORIDE [Concomitant]
     Route: 048
  6. CARBAZOCHROME SODIUM SULFONATE [Concomitant]
     Indication: LEUKOCYTOCLASTIC VASCULITIS
     Route: 048
     Dates: start: 20071012, end: 20071022
  7. PREDNISOLONE [Concomitant]
     Indication: HYPOAESTHESIA
     Route: 048
     Dates: start: 20071012, end: 20071015

REACTIONS (1)
  - HYPOAESTHESIA [None]
